FAERS Safety Report 18237864 (Version 1)
Quarter: 2020Q3

REPORT INFORMATION
  Report Type: Report from Study
  Country: BR (occurrence: BR)
  Receive Date: 20200907
  Receipt Date: 20200907
  Transmission Date: 20201103
  Serious: Yes (Other)
  Sender: FDA-Public Use
  Company Number: BR-B.I. PHARMACEUTICALS,INC./RIDGEFIELD-2020-MR-044409

PATIENT
  Age: 74 Year
  Sex: Female
  Weight: 54 kg

DRUGS (15)
  1. PREDSIN [CHLORAMPHENICOL;PREDNISOLONE BUTYLACETATE] [Concomitant]
     Indication: DRUG THERAPY
     Dosage: IN THE MORNING
  2. OFEV [Suspect]
     Active Substance: NINTEDANIB
     Indication: IDIOPATHIC PULMONARY FIBROSIS
     Dosage: 150 MG TWICE DAILY
     Route: 048
     Dates: start: 20200804
  3. GLICAZIDA [Concomitant]
     Active Substance: GLICLAZIDE
     Indication: DIABETES MELLITUS
     Dosage: 30 MG TWICE DAILY
     Route: 048
  4. PANTOPRAZOL [PANTOPRAZOLE] [Concomitant]
     Active Substance: PANTOPRAZOLE
     Indication: PROPHYLAXIS
     Dosage: ONCE DAILY, IN THE MORNING
     Route: 048
  5. OXYGEN. [Concomitant]
     Active Substance: OXYGEN
     Indication: IDIOPATHIC PULMONARY FIBROSIS
  6. BENICAR ANLO [Concomitant]
     Active Substance: AMLODIPINE BESYLATE\OLMESARTAN MEDOXOMIL
     Indication: HYPERTENSION
     Dosage: 20MG + 5MG ONCE DAILY, BY THE MORNING
     Route: 048
  7. CARVEDILOL. [Concomitant]
     Active Substance: CARVEDILOL
     Indication: HEART RATE IRREGULAR
     Route: 048
  8. REGULAR INSULIN NOVO NORDISK [Concomitant]
     Active Substance: INSULIN HUMAN
     Indication: DIABETES MELLITUS
     Dosage: IF NECESSARY, 6 TO 10 UNITS BY THE AFTERNOON
  9. INSULINA NPH [Concomitant]
     Active Substance: INSULIN HUMAN
     Indication: DIABETES MELLITUS
     Dosage: BY THE MORNING
  10. LEVOTIROXINA SODICA [Concomitant]
     Active Substance: LEVOTHYROXINE SODIUM
     Indication: THYROID DISORDER
     Dosage: 125 MCG ONCE DAILY
     Route: 048
  11. HIDROCLOROTIAZIDA [Concomitant]
     Active Substance: HYDROCHLOROTHIAZIDE
     Indication: POLYURIA
     Dosage: BY THE MORNING
     Route: 048
  12. PREDSIN [CHLORAMPHENICOL;PREDNISOLONE BUTYLACETATE] [Concomitant]
     Indication: FIBROSIS
  13. OFEV [Suspect]
     Active Substance: NINTEDANIB
     Dates: start: 202008
  14. METFORMINA [METFORMIN] [Concomitant]
     Active Substance: METFORMIN HYDROCHLORIDE
     Indication: DIABETES MELLITUS
     Dosage: 500 MG TWICE DAILY
     Route: 048
  15. PANTOPRAZOL [PANTOPRAZOLE] [Concomitant]
     Active Substance: PANTOPRAZOLE
     Dosage: 40MG, ONCE BY THE MORNING AND ONCE BY THE NIGHT

REACTIONS (3)
  - Liver function test abnormal [Unknown]
  - Hypergammaglobulinaemia [Unknown]
  - Hepatic cirrhosis [Not Recovered/Not Resolved]

NARRATIVE: CASE EVENT DATE: 202008
